FAERS Safety Report 17076067 (Version 1)
Quarter: 2019Q4

REPORT INFORMATION
  Report Type: Spontaneous
  Country: NL (occurrence: FR)
  Receive Date: 20191126
  Receipt Date: 20191126
  Transmission Date: 20200122
  Serious: Yes (Death)
  Sender: FDA-Public Use
  Company Number: FR-FRESENIUS KABI-FK201913071

PATIENT
  Age: 65 Year
  Sex: Male

DRUGS (5)
  1. CISPLATIN. [Suspect]
     Active Substance: CISPLATIN
     Indication: SQUAMOUS CELL CARCINOMA
     Route: 042
     Dates: start: 20170424, end: 20170424
  2. GEMCITABINE HYDROCHLORIDE. [Suspect]
     Active Substance: GEMCITABINE HYDROCHLORIDE
     Indication: SQUAMOUS CELL CARCINOMA
     Route: 042
     Dates: start: 20170424, end: 20170424
  3. ONDANSETRON (MANUFACTURER UNKNOWN) [Suspect]
     Active Substance: ONDANSETRON
     Indication: PREMEDICATION
     Route: 042
     Dates: start: 20170424, end: 20170424
  4. APREPITANT. [Suspect]
     Active Substance: APREPITANT
     Indication: PREMEDICATION
     Route: 048
     Dates: start: 20170424, end: 20170424
  5. METHYLPREDNISOLONE. [Suspect]
     Active Substance: METHYLPREDNISOLONE
     Indication: SQUAMOUS CELL CARCINOMA
     Route: 042
     Dates: start: 20170420, end: 20170424

REACTIONS (2)
  - Epistaxis [Fatal]
  - Cardiac arrest [Fatal]

NARRATIVE: CASE EVENT DATE: 20170424
